FAERS Safety Report 6804268-3 (Version None)
Quarter: 2010Q2

REPORT INFORMATION
  Report Type: 
  Country: None (occurrence: None)
  Receive Date: 20100628
  Receipt Date: 20070301
  Transmission Date: 20101027
  Serious: No
  Sender: FDA-Public Use
  Company Number: US-PFIZER INC-2007017986

PATIENT
  Age: 55 Year
  Sex: Female

DRUGS (1)
  1. XALATAN [Suspect]
     Indication: GLAUCOMA
     Route: 061
     Dates: start: 20020101, end: 20060101

REACTIONS (2)
  - MUSCULAR WEAKNESS [None]
  - MYALGIA [None]
